FAERS Safety Report 11654567 (Version 2)
Quarter: 2015Q4

REPORT INFORMATION
  Report Type: Report from Study
  Country: US (occurrence: US)
  Receive Date: 20151023
  Receipt Date: 20151218
  Transmission Date: 20160304
  Serious: No
  Sender: FDA-Public Use
  Company Number: PHEH2015US020945

PATIENT
  Age: 63 Year
  Sex: Female

DRUGS (1)
  1. COSENTYX [Suspect]
     Active Substance: SECUKINUMAB
     Indication: PSORIASIS
     Route: 058
     Dates: start: 20150601

REACTIONS (7)
  - Pruritus [Unknown]
  - Depression [Unknown]
  - Skin lesion [Unknown]
  - Psoriasis [Unknown]
  - Frustration [Unknown]
  - Haemorrhage [Unknown]
  - Excoriation [Unknown]

NARRATIVE: CASE EVENT DATE: 20150917
